FAERS Safety Report 9314083 (Version 1)
Quarter: 2013Q2

REPORT INFORMATION
  Report Type: Spontaneous
  Country: US (occurrence: None)
  Receive Date: 20130524
  Receipt Date: 20130524
  Transmission Date: 20140414
  Serious: Yes (Other)
  Sender: FDA-Public Use
  Company Number: None

PATIENT
  Age: 40 Year
  Sex: Female
  Weight: 99.79 kg

DRUGS (1)
  1. ZOLPIDEM TARTRATE [Suspect]
     Indication: INSOMNIA
     Dosage: 1 DOSE BEDTIME PO
     Route: 048
     Dates: start: 20130111, end: 20130211

REACTIONS (8)
  - Confusional state [None]
  - Amnesia [None]
  - Abnormal dreams [None]
  - Sleep-related eating disorder [None]
  - Hallucination, visual [None]
  - Paranoia [None]
  - Loss of employment [None]
  - Economic problem [None]
